FAERS Safety Report 23449502 (Version 1)
Quarter: 2024Q1

REPORT INFORMATION
  Report Type: Spontaneous
  Country: US (occurrence: US)
  Receive Date: 20240129
  Receipt Date: 20240129
  Transmission Date: 20240409
  Serious: Yes (Other)
  Sender: FDA-Public Use
  Company Number: US-BEH-2024167825

PATIENT
  Sex: Female

DRUGS (3)
  1. HIZENTRA [Suspect]
     Active Substance: HUMAN IMMUNOGLOBULIN G
     Indication: Humoral immune defect
     Dosage: 15 GRAM, QW
     Route: 058
     Dates: start: 202305
  2. HIZENTRA [Suspect]
     Active Substance: HUMAN IMMUNOGLOBULIN G
     Indication: Selective IgG subclass deficiency
  3. HIZENTRA [Suspect]
     Active Substance: HUMAN IMMUNOGLOBULIN G
     Indication: Hypogammaglobulinaemia

REACTIONS (5)
  - Pneumonia [Unknown]
  - Dyspnoea [Unknown]
  - COVID-19 [Unknown]
  - Sinusitis [Unknown]
  - Ear infection [Unknown]
